FAERS Safety Report 9858089 (Version 4)
Quarter: 2014Q3

REPORT INFORMATION
  Report Type: Spontaneous
  Country: US (occurrence: US)
  Receive Date: 20140131
  Receipt Date: 20140930
  Transmission Date: 20150326
  Serious: Yes (Hospitalization, Other)
  Sender: FDA-Public Use
  Company Number: US-009507513-1401USA012006

PATIENT
  Sex: Female

DRUGS (5)
  1. FOSAMAX [Suspect]
     Active Substance: ALENDRONATE SODIUM
     Dosage: 70 MG, QW
     Route: 048
     Dates: start: 20020219, end: 20080201
  2. CALCIUM (UNSPECIFIED) [Concomitant]
     Active Substance: CALCIUM
     Dosage: 600 MG, BID
     Dates: start: 2000
  3. TEGRETOL [Concomitant]
     Active Substance: CARBAMAZEPINE
     Indication: TRIGEMINAL NEURALGIA
     Dosage: UNK
     Dates: start: 1990
  4. ALENDRONATE SODIUM. [Suspect]
     Active Substance: ALENDRONATE SODIUM
     Indication: OSTEOPOROSIS
     Dosage: 70 MG, QW
     Route: 048
     Dates: start: 20080225, end: 201009
  5. FOSAMAX [Suspect]
     Active Substance: ALENDRONATE SODIUM
     Indication: OSTEOPOROSIS
     Dosage: 10 MG, QD
     Route: 048
     Dates: start: 20000930, end: 200802

REACTIONS (23)
  - Dental implantation [Unknown]
  - Osteoarthritis [Unknown]
  - Spinal cord compression [Unknown]
  - Bone pain [Unknown]
  - Femur fracture [Recovered/Resolved]
  - Hyperlipidaemia [Unknown]
  - Fall [Unknown]
  - Intramedullary rod insertion [Unknown]
  - Calcium deficiency [Unknown]
  - Fall [Unknown]
  - Fall [Unknown]
  - Hypertension [Unknown]
  - Femur fracture [Recovered/Resolved]
  - Tooth extraction [Unknown]
  - Anaemia [Unknown]
  - Vitamin D deficiency [Unknown]
  - Oral surgery [Unknown]
  - Herpes zoster [Unknown]
  - Intramedullary rod insertion [Unknown]
  - Cataract operation [Unknown]
  - Anaemia postoperative [Unknown]
  - Wrist deformity [Unknown]
  - Joint injury [Unknown]

NARRATIVE: CASE EVENT DATE: 2003
